FAERS Safety Report 20097760 (Version 6)
Quarter: 2022Q1

REPORT INFORMATION
  Report Type: Report from Study
  Country: US (occurrence: US)
  Receive Date: 20211122
  Receipt Date: 20220228
  Transmission Date: 20220423
  Serious: No
  Sender: FDA-Public Use
  Company Number: US-NOVARTISTESTPH-NVSC2021US266774

PATIENT
  Sex: Female

DRUGS (1)
  1. KISQALI [Suspect]
     Active Substance: RIBOCICLIB
     Indication: Breast cancer
     Dosage: 400 MG, QD
     Route: 048
     Dates: start: 202110

REACTIONS (5)
  - Nausea [Recovering/Resolving]
  - Decreased appetite [Unknown]
  - Anaemia [Unknown]
  - Muscular weakness [Unknown]
  - Fatigue [Unknown]
